FAERS Safety Report 4994258-8 (Version None)
Quarter: 2006Q2

REPORT INFORMATION
  Report Type: 
  Country: None (occurrence: None)
  Receive Date: 20060503
  Receipt Date: 20060420
  Transmission Date: 20061013
  Serious: Yes (Life-Threatening, Hospitalization, Other)
  Sender: FDA-Public Use
  Company Number: JP-2005-012299

PATIENT
  Age: 55 Year
  Sex: Male
  Weight: 52 kg

DRUGS (8)
  1. BETASERON [Suspect]
     Indication: MULTIPLE SCLEROSIS
     Dosage: 8 MIU, EVERY 2D, SUBCUTANEOUS
     Route: 058
     Dates: start: 20001212, end: 20050624
  2. ALOSENN [Concomitant]
  3. GABALON [Concomitant]
  4. CONIEL (BENIDIPINE HYDROCHLORIDE) [Concomitant]
  5. SYMMETREL [Concomitant]
  6. PREDNISOLONE [Concomitant]
  7. MUCOSTA              (REBAMIPIDE) TABLET [Concomitant]
  8. ENALAPRIL MALEATE [Concomitant]

REACTIONS (12)
  - ANAEMIA [None]
  - CYTOMEGALOVIRUS ANTIGEN POSITIVE [None]
  - DECREASED APPETITE [None]
  - DEHYDRATION [None]
  - DNA ANTIBODY POSITIVE [None]
  - HISTIOCYTOSIS HAEMATOPHAGIC [None]
  - PLATELET COUNT DECREASED [None]
  - PYREXIA [None]
  - SERUM FERRITIN INCREASED [None]
  - SHOCK [None]
  - SYSTEMIC LUPUS ERYTHEMATOSUS [None]
  - WHITE BLOOD CELL COUNT DECREASED [None]
